FAERS Safety Report 7120560-X (Version None)
Quarter: 2010Q4

REPORT INFORMATION
  Report Type: 
  Country: None (occurrence: None)
  Receive Date: 20101122
  Receipt Date: 20101122
  Transmission Date: 20110411
  Serious: Yes (Other)
  Sender: FDA-Public Use
  Company Number: None

PATIENT
  Age: 39 Year
  Sex: Female
  Weight: 22.6799 kg

DRUGS (1)
  1. TIZANIDINE HCL [Suspect]
     Dosage: 1-2 TABLETS DAILY DAILY PO
     Route: 048
     Dates: start: 20101001, end: 20101119

REACTIONS (1)
  - HALLUCINATION [None]
